FAERS Safety Report 6720013-4 (Version None)
Quarter: 2010Q2

REPORT INFORMATION
  Report Type: 
  Country: None (occurrence: None)
  Receive Date: 20100511
  Receipt Date: 20100505
  Transmission Date: 20101027
  Serious: Yes (Death, Hospitalization, Disabling, Other)
  Sender: FDA-Public Use
  Company Number: US-TEVA-233727USA

PATIENT
  Sex: Female
  Weight: 54 kg

DRUGS (7)
  1. COPAXONE [Suspect]
     Indication: MULTIPLE SCLEROSIS
     Route: 058
  2. INTERFERON BETA-1A [Suspect]
     Indication: MULTIPLE SCLEROSIS
     Dates: end: 20070601
  3. BACLOFEN [Concomitant]
     Dosage: BY INTERNAL PUMP
  4. PAROXETINE HCL [Concomitant]
     Route: 048
  5. MORPHINE [Concomitant]
     Indication: PAIN
  6. CARBAMAZEPINE [Concomitant]
     Route: 048
  7. UNSPECIFIED MEDICATION [Concomitant]
     Indication: PAIN

REACTIONS (3)
  - FATIGUE [None]
  - MESOTHELIOMA [None]
  - MULTIPLE SCLEROSIS RELAPSE [None]
